FAERS Safety Report 17352523 (Version 1)
Quarter: 2020Q1

REPORT INFORMATION
  Report Type: Spontaneous
  Country: US (occurrence: US)
  Receive Date: 20200131
  Receipt Date: 20200131
  Transmission Date: 20200409
  Serious: No
  Sender: FDA-Public Use
  Company Number: US-009507513-2001USA003700

PATIENT
  Sex: Female
  Weight: 82.09 kg

DRUGS (7)
  1. NEXPLANON [Suspect]
     Active Substance: ETONOGESTREL
     Dosage: 1 ROD EVERY 3 YEARS
     Route: 059
     Dates: start: 20190501, end: 20191227
  2. FOLIC ACID. [Concomitant]
     Active Substance: FOLIC ACID
  3. DIVALPROEX SODIUM. [Concomitant]
     Active Substance: DIVALPROEX SODIUM
  4. KEPPRA XR [Concomitant]
     Active Substance: LEVETIRACETAM
  5. LORAZEPAM. [Concomitant]
     Active Substance: LORAZEPAM
  6. LAMOTRIGINE. [Concomitant]
     Active Substance: LAMOTRIGINE
  7. NEXPLANON [Suspect]
     Active Substance: ETONOGESTREL
     Indication: CONTRACEPTION
     Dosage: 1 ROD EVERY 3 YEARS
     Route: 059
     Dates: start: 20171110, end: 20181212

REACTIONS (1)
  - Urticaria [Recovered/Resolved]
